FAERS Safety Report 15005007 (Version 1)
Quarter: 2018Q2

REPORT INFORMATION
  Report Type: Spontaneous
  Country: US (occurrence: US)
  Receive Date: 20180613
  Receipt Date: 20180613
  Transmission Date: 20180711
  Serious: No
  Sender: FDA-Public Use
  Company Number: US-COVIS PHARMA B.V.-2017COV00259

PATIENT
  Sex: Female
  Weight: 125.17 kg

DRUGS (9)
  1. LEVOTHYROXINE. [Concomitant]
     Active Substance: LEVOTHYROXINE
     Route: 048
  2. OMEPRAZOLE MAGNESIUM. [Suspect]
     Active Substance: OMEPRAZOLE MAGNESIUM
     Indication: DYSPEPSIA
     Dosage: 20 MG, 1X/DAY
     Route: 048
  3. ATORVASTATIN [Concomitant]
     Active Substance: ATORVASTATIN
     Route: 048
  4. LANTUS [Concomitant]
     Active Substance: INSULIN GLARGINE
     Route: 058
  5. LISINOPRIL. [Suspect]
     Active Substance: LISINOPRIL
     Indication: HYPERTENSION
     Dosage: UNK, 1X/DAY
     Route: 048
  6. METFORMIN [Concomitant]
     Active Substance: METFORMIN HYDROCHLORIDE
     Route: 048
  7. AMLODIPINE [Concomitant]
     Active Substance: AMLODIPINE BESYLATE
     Dosage: UNK
     Route: 048
     Dates: start: 2016
  8. BYDUREON [Suspect]
     Active Substance: EXENATIDE
     Indication: TYPE 2 DIABETES MELLITUS
     Dosage: 2 MG, UNK
     Route: 058
     Dates: start: 2017
  9. CLONIDINE. [Concomitant]
     Active Substance: CLONIDINE
     Dosage: UNK
     Route: 048
     Dates: start: 2017

REACTIONS (4)
  - Blood cholesterol abnormal [Not Recovered/Not Resolved]
  - Hypertension [Not Recovered/Not Resolved]
  - Injection site reaction [Not Recovered/Not Resolved]
  - Thyroid disorder [Not Recovered/Not Resolved]

NARRATIVE: CASE EVENT DATE: 2017
